FAERS Safety Report 11535303 (Version 2)
Quarter: 2015Q4

REPORT INFORMATION
  Report Type: Spontaneous
  Country: US (occurrence: US)
  Receive Date: 20150922
  Receipt Date: 20151002
  Transmission Date: 20160304
  Serious: Yes (Hospitalization, Other)
  Sender: FDA-Public Use
  Company Number: US-009507513-1509USA010632

PATIENT
  Sex: Male
  Weight: 68.27 kg

DRUGS (1)
  1. JANUVIA [Suspect]
     Active Substance: SITAGLIPTIN PHOSPHATE
     Indication: TYPE 2 DIABETES MELLITUS
     Dosage: 100 MG, QD
     Route: 048
     Dates: start: 20121008, end: 20140529

REACTIONS (34)
  - Bile duct obstruction [Recovered/Resolved]
  - Renal tubular necrosis [Unknown]
  - Acute kidney injury [Recovered/Resolved]
  - Hyperlipidaemia [Unknown]
  - Blood glucose decreased [Unknown]
  - Adenocarcinoma pancreas [Unknown]
  - Acute hepatic failure [Recovering/Resolving]
  - Cystitis escherichia [Recovered/Resolved]
  - Cholelithiasis [Unknown]
  - Constipation [Unknown]
  - Chronic kidney disease [Not Recovered/Not Resolved]
  - Blood calcium decreased [Unknown]
  - Rhabdomyolysis [Recovered/Resolved]
  - Metabolic acidosis [Recovered/Resolved]
  - Chronic kidney disease [Not Recovered/Not Resolved]
  - Orchitis [Recovered/Resolved]
  - Pulmonary hypertension [Unknown]
  - Leukocytosis [Unknown]
  - Malnutrition [Unknown]
  - Vitamin D deficiency [Unknown]
  - Hypokalaemia [Recovered/Resolved]
  - Urinary tract infection fungal [Unknown]
  - Aortic valve calcification [Unknown]
  - Oesophageal candidiasis [Recovered/Resolved]
  - Duodenal ulcer [Unknown]
  - Atelectasis [Unknown]
  - Hypertension [Unknown]
  - Normochromic normocytic anaemia [Unknown]
  - Cardiomegaly [Unknown]
  - Mitral valve disease [Unknown]
  - Ventricular tachycardia [Unknown]
  - Tricuspid valve incompetence [Unknown]
  - Hyponatraemia [Recovered/Resolved]
  - Atrial fibrillation [Unknown]

NARRATIVE: CASE EVENT DATE: 20140528
